FAERS Safety Report 23456138 (Version 1)
Quarter: 2024Q1

REPORT INFORMATION
  Report Type: Spontaneous
  Country: CN (occurrence: CN)
  Receive Date: 20240130
  Receipt Date: 20240130
  Transmission Date: 20240409
  Serious: Yes (Other)
  Sender: FDA-Public Use
  Company Number: CN-002147023-NVSC2024CN017129

PATIENT
  Age: 36 Year
  Sex: Female
  Weight: 65 kg

DRUGS (2)
  1. DEXAMETHASONE\TOBRAMYCIN [Suspect]
     Active Substance: DEXAMETHASONE\TOBRAMYCIN
     Indication: Infection
     Dosage: 1.000 MG, QID
     Route: 047
     Dates: start: 20231223, end: 20231223
  2. DEXAMETHASONE\TOBRAMYCIN [Suspect]
     Active Substance: DEXAMETHASONE\TOBRAMYCIN
     Indication: Corneal oedema

REACTIONS (4)
  - Ulcerative keratitis [Recovering/Resolving]
  - Injury corneal [Recovering/Resolving]
  - Eye pain [Recovering/Resolving]
  - Sensation of foreign body [Recovering/Resolving]

NARRATIVE: CASE EVENT DATE: 20231223
